FAERS Safety Report 10547843 (Version 1)
Quarter: 2014Q4

REPORT INFORMATION
  Report Type: Spontaneous
  Country: CN (occurrence: None)
  Receive Date: 20141024
  Receipt Date: 20141024
  Transmission Date: 20150529
  Serious: Yes (Hospitalization)
  Sender: FDA-Public Use
  Company Number: VAL_03498_2014

PATIENT
  Age: 82 Year
  Sex: Male
  Weight: 60 kg

DRUGS (3)
  1. SPIRONOLACTONE (SPIRONOLACTONE) [Suspect]
     Active Substance: SPIRONOLACTONE
     Indication: BLOOD PRESSURE INADEQUATELY CONTROLLED
     Dosage: (DF)
     Dates: start: 20140428, end: 20140507
  2. FUROSEMIDE (FUROSEMIDE) [Suspect]
     Active Substance: FUROSEMIDE
     Indication: BLOOD PRESSURE INADEQUATELY CONTROLLED
     Dosage: (DF)
     Dates: start: 20140428
  3. LOTENSIN [Suspect]
     Active Substance: BENAZEPRIL HYDROCHLORIDE
     Indication: HYPERTENSION
     Dosage: (10 MG) PER DAY NASAL
     Dates: start: 20140428, end: 20140507

REACTIONS (5)
  - Renal impairment [None]
  - Infection [None]
  - Incorrect route of drug administration [None]
  - Blood urea increased [None]
  - Blood creatine increased [None]

NARRATIVE: CASE EVENT DATE: 20140428
